FAERS Safety Report 24079698 (Version 1)
Quarter: 2024Q3

REPORT INFORMATION
  Report Type: Spontaneous
  Country: US (occurrence: US)
  Receive Date: 20240711
  Receipt Date: 20240711
  Transmission Date: 20241017
  Serious: No
  Sender: JOHNSON AND JOHNSON
  Company Number: US-JNJFOC-20240722193

PATIENT
  Age: 64 Year
  Sex: Male

DRUGS (2)
  1. ERLEADA [Suspect]
     Active Substance: APALUTAMIDE
     Indication: Product used for unknown indication
     Route: 048
  2. ORGOVYX [Suspect]
     Active Substance: RELUGOLIX
     Indication: Prostate cancer
     Route: 048
     Dates: start: 20240401

REACTIONS (6)
  - Piloerection [Unknown]
  - Rash [Unknown]
  - Weight decreased [Unknown]
  - Palpitations [Unknown]
  - Night sweats [Unknown]
  - Hot flush [Unknown]
